FAERS Safety Report 13353953 (Version 1)
Quarter: 2017Q1

REPORT INFORMATION
  Report Type: Spontaneous
  Country: US (occurrence: US)
  Receive Date: 20170320
  Receipt Date: 20170320
  Transmission Date: 20170429
  Serious: Yes (Other)
  Sender: FDA-Public Use
  Company Number: None

PATIENT
  Age: 10 Year
  Sex: Female
  Weight: 38.25 kg

DRUGS (1)
  1. NIGHTTIME COLD AND FLU RELIEF [Suspect]
     Active Substance: ACETAMINOPHEN\DEXTROMETHORPHAN HYDROBROMIDE\DOXYLAMINE SUCCINATE
     Indication: VIRAL UPPER RESPIRATORY TRACT INFECTION
     Dosage: ?          OTHER FREQUENCY:QD;?
     Route: 048
     Dates: start: 20170310

REACTIONS (3)
  - Miosis [None]
  - Nausea [None]
  - Dizziness [None]

NARRATIVE: CASE EVENT DATE: 20170311
